FAERS Safety Report 12248290 (Version 1)
Quarter: 2016Q2

REPORT INFORMATION
  Report Type: Spontaneous
  Country: None (occurrence: None)
  Receive Date: 20160407
  Receipt Date: 20160407
  Transmission Date: 20160815
  Serious: Yes (Disabling)
  Sender: FDA-Public Use
  Company Number: None

PATIENT
  Age: 60 Year
  Sex: Male
  Weight: 92.99 kg

DRUGS (2)
  1. VANCOMYCIN [Concomitant]
     Active Substance: VANCOMYCIN
  2. CLINDAMYCIN [Suspect]
     Active Substance: CLINDAMYCIN\CLINDAMYCIN PHOSPHATE
     Dosage: 20 CAPSULES EVERY 12 HOURS
     Route: 048

REACTIONS (1)
  - Clostridium difficile infection [None]

NARRATIVE: CASE EVENT DATE: 20160106
